FAERS Safety Report 9285595 (Version 6)
Quarter: 2013Q3

REPORT INFORMATION
  Report Type: Spontaneous
  Country: GB (occurrence: GB)
  Receive Date: 20130513
  Receipt Date: 20130721
  Transmission Date: 20140515
  Serious: Yes (Hospitalization, Other)
  Sender: FDA-Public Use
  Company Number: PHFR2013GB002695

PATIENT
  Age: 44 Year
  Sex: Male

DRUGS (16)
  1. CLOZARIL [Suspect]
     Indication: SCHIZOPHRENIA
     Dosage: UNK
     Route: 048
     Dates: start: 20040806
  2. CLOZARIL [Suspect]
     Dosage: 300 MG, BID
     Route: 048
     Dates: start: 20120502
  3. CLOZARIL [Suspect]
     Dosage: 150 MG, BID
  4. DEPAKOTE [Concomitant]
     Indication: MOOD ALTERED
     Dosage: 1000 MG MORNING
     Route: 048
     Dates: start: 20120627
  5. DEPAKOTE [Concomitant]
     Dosage: 1000 MG TEA TIME
     Route: 048
     Dates: start: 20120627
  6. DEPAKOTE [Concomitant]
     Dosage: 500 MG BED TIME
     Route: 048
     Dates: start: 20120627
  7. CLONAZEPAM [Concomitant]
     Indication: ANXIOLYTIC THERAPY
     Dosage: 1 MG AT A TEA TIME
     Route: 048
     Dates: start: 20050613
  8. PROCYCLIDINE [Concomitant]
     Indication: EXTRAPYRAMIDAL DISORDER
     Dosage: 10 MG, IN 24 HR (5 MG TWICE A DAILY)
     Route: 048
     Dates: start: 20110927
  9. SERTRALINE [Concomitant]
     Indication: ANTIDEPRESSANT THERAPY
     Dosage: 50 MG, QD
     Route: 048
  10. LACTULOSE [Concomitant]
     Indication: CONSTIPATION
     Dosage: 40 ML
     Route: 048
  11. LACTULOSE [Concomitant]
     Dosage: 20 ML, BID
  12. LAXIDO [Concomitant]
     Indication: CONSTIPATION
     Dosage: 1 DF, BID (1 SACHET)
     Route: 048
  13. HALOPERIDOL [Concomitant]
     Indication: AGITATION
     Dosage: 5 MG, UNK
     Route: 048
  14. HALOPERIDOL [Concomitant]
     Indication: AGGRESSION
     Dosage: 15 MG, MAX IN 24 HOURS
     Route: 048
  15. IBUPROFEN [Concomitant]
     Indication: EXTRAPYRAMIDAL DISORDER
     Dosage: 200 MG, UNK
  16. IBUPROFEN [Concomitant]
     Dosage: 600 MG, MAX IN 24 HOURS
     Route: 048

REACTIONS (9)
  - Cardiac murmur [Recovering/Resolving]
  - Respiratory tract infection [Recovered/Resolved]
  - Lower respiratory tract infection [Unknown]
  - Cough [Unknown]
  - Oxygen saturation decreased [Unknown]
  - Loss of consciousness [Unknown]
  - Aortic dilatation [Unknown]
  - Blood sodium decreased [Unknown]
  - Blood pressure decreased [Unknown]
